FAERS Safety Report 19299201 (Version 1)
Quarter: 2021Q2

REPORT INFORMATION
  Report Type: Spontaneous
  Country: ES (occurrence: ES)
  Receive Date: 20210525
  Receipt Date: 20210525
  Transmission Date: 20210717
  Serious: Yes (Life-Threatening, Other)
  Sender: FDA-Public Use
  Company Number: ES-PIRAMAL CRITICAL CARE LIMITED-2021-PEL-000320

PATIENT

DRUGS (6)
  1. SEVOFLURANE. [Suspect]
     Active Substance: SEVOFLURANE
     Indication: ANAESTHESIA
     Dosage: 1 TOTAL
     Route: 055
     Dates: start: 20210420, end: 20210420
  2. LIDOCAINE. [Suspect]
     Active Substance: LIDOCAINE
     Indication: ANAESTHESIA
     Dosage: 120 MILLIGRAM, 1 TOTAL
     Route: 042
     Dates: start: 20210420, end: 20210420
  3. REMIFENTANILO                      /01229901/ [Concomitant]
     Indication: ANAESTHESIA
     Dosage: 0.05 MICROGRAM/KILOGRAM, 1 TOTAL
     Route: 042
     Dates: start: 20210420, end: 20210420
  4. FENTANYL TRANSDERMAL SYSTEM [Concomitant]
     Active Substance: FENTANYL
     Indication: ANAESTHESIA
     Dosage: 200 MICROGRAM
     Route: 042
     Dates: start: 20210420, end: 20210420
  5. MIDAZOLAM. [Concomitant]
     Active Substance: MIDAZOLAM
     Indication: ANAESTHESIA
     Dosage: 0.8 MILLIGRAM, 1 TOTAL
     Route: 042
     Dates: start: 20210420, end: 20210420
  6. PROPOFOL. [Suspect]
     Active Substance: PROPOFOL
     Indication: ANAESTHESIA
     Dosage: 120 MILLIGRAM
     Route: 042
     Dates: start: 20210420, end: 20210420

REACTIONS (3)
  - Lactic acidosis [Recovered/Resolved]
  - Bundle branch block right [Recovered/Resolved]
  - Hypotension [Recovered/Resolved]

NARRATIVE: CASE EVENT DATE: 20210420
